FAERS Safety Report 9174885 (Version 2)
Quarter: 2013Q2

REPORT INFORMATION
  Report Type: Spontaneous
  Country: GR (occurrence: None)
  Receive Date: 20130318
  Receipt Date: 20130408
  Transmission Date: 20140414
  Serious: Yes (Other)
  Sender: FDA-Public Use
  Company Number: HRA-CDB20130026

PATIENT
  Age: 26 Year
  Sex: Female

DRUGS (1)
  1. ELLAONE [Suspect]
     Indication: CONTRACEPTION
     Route: 048
     Dates: start: 20130202, end: 20130202

REACTIONS (2)
  - Pregnancy [None]
  - Maternal exposure before pregnancy [None]
